FAERS Safety Report 5236052-9 (Version None)
Quarter: 2007Q1

REPORT INFORMATION
  Report Type: 
  Country: None (occurrence: None)
  Receive Date: 20070212
  Receipt Date: 20070130
  Transmission Date: 20070707
  Serious: Yes (Hospitalization)
  Sender: FDA-Public Use
  Company Number: US-ELI_LILLY_AND_COMPANY-US200701003455

PATIENT
  Age: 77 Year
  Sex: Female
  Weight: 87.074 kg

DRUGS (2)
  1. FORTEO [Suspect]
     Indication: OSTEOPOROSIS
     Dosage: 20 UG, DAILY (1/D)
     Dates: start: 20041201, end: 20040401
  2. FORTEO [Suspect]
     Dates: start: 20070101

REACTIONS (3)
  - CONTUSION [None]
  - FALL [None]
  - HEAD INJURY [None]
